FAERS Safety Report 8984241 (Version 1)
Quarter: 2012Q4

REPORT INFORMATION
  Report Type: Spontaneous
  Country: DK (occurrence: None)
  Receive Date: 20121212
  Receipt Date: 20121212
  Transmission Date: 20130627
  Serious: Yes (Other)
  Sender: FDA-Public Use
  Company Number: 2012MA013868

PATIENT
  Age: 80 Year
  Sex: Female

DRUGS (5)
  1. FEVERALL [Suspect]
     Indication: PAIN
     Dates: start: 20121101, end: 20121107
  2. VENTOLIN [Concomitant]
  3. FLIXOTIDE [Concomitant]
  4. LORATADINE [Concomitant]
  5. TRAXAM [Concomitant]

REACTIONS (4)
  - Hypersensitivity [None]
  - Throat irritation [None]
  - Oral pain [None]
  - Pigmentation disorder [None]
